FAERS Safety Report 5027737-8 (Version None)
Quarter: 2006Q2

REPORT INFORMATION
  Report Type: 
  Country: None (occurrence: None)
  Receive Date: 20060428
  Receipt Date: 20060306
  Transmission Date: 20061013
  Serious: Yes (Hospitalization)
  Sender: FDA-Public Use
  Company Number: COT_0486_2006

PATIENT
  Age: 77 Year
  Sex: Female
  Weight: 70.3075 kg

DRUGS (12)
  1. VENTAVIS [Suspect]
     Indication: PULMONARY HYPERTENSION
     Dosage: 5 MCG 6XD IH
     Route: 055
     Dates: start: 20050601
  2. SYNTHROID [Concomitant]
  3. LASIX [Concomitant]
  4. PRILOSEC [Concomitant]
  5. HORSE CHESTNUT [Concomitant]
  6. KLONOPIN [Concomitant]
  7. FISH OIL [Concomitant]
  8. COENZYME Q10 [Concomitant]
  9. DIGOXIN [Concomitant]
  10. MIRALAX [Concomitant]
  11. SILDENAFIL [Concomitant]
  12. POTASSIUM [Concomitant]

REACTIONS (1)
  - CARDIAC FAILURE [None]
